FAERS Safety Report 7942088-7 (Version None)
Quarter: 2011Q4

REPORT INFORMATION
  Report Type: 
  Country: None (occurrence: None)
  Receive Date: 20111114
  Receipt Date: 20110815
  Transmission Date: 20120403
  Serious: Yes (Hospitalization)
  Sender: FDA-Public Use
  Company Number: 2011029543

PATIENT
  Age: 19 Year
  Sex: Female
  Weight: 140 kg

DRUGS (1)
  1. HIZENTRA [Suspect]
     Indication: HYPOGLOBULINAEMIA
     Dosage: (10 G 1X/WEEK, INFUSED VIA 6 SITES OVER 1 HOUR SUBCUTANEOUS)
     Route: 058
     Dates: start: 20110810

REACTIONS (6)
  - DEHYDRATION [None]
  - VOMITING [None]
  - HEADACHE [None]
  - PRURITUS [None]
  - DIARRHOEA [None]
  - NAUSEA [None]
